FAERS Safety Report 6065642-9 (Version None)
Quarter: 2009Q1

REPORT INFORMATION
  Report Type: 
  Country: None (occurrence: None)
  Receive Date: 20090130
  Receipt Date: 20090108
  Transmission Date: 20090719
  Serious: Yes (Hospitalization)
  Sender: FDA-Public Use
  Company Number: 6048102

PATIENT
  Age: 54 Year
  Sex: Male

DRUGS (10)
  1. L-THYROXIN (TABLET) (LEVOTHYROXINE) [Suspect]
     Indication: HYPOTHYROIDISM
     Dosage: 25 MCG (25 MCG,1 IN 1 D) ORAL
     Route: 048
     Dates: start: 20080630, end: 20080716
  2. CIPROFLOXACIN [Suspect]
     Indication: PNEUMONIA
     Dosage: 1000 MG (500 MG- 2 IN 1 D) ORAL
     Route: 048
     Dates: start: 20080710, end: 20080716
  3. ACC(EFFERVESCENT TABLET) (ACETYLCYSTEINE) [Suspect]
     Indication: PNEUMONIA
     Dosage: 600 MG (200 MG,3 IN 1 D) ORAL
     Route: 048
     Dates: start: 20080710, end: 20080716
  4. ASS (TABLET) (ACETYLSALICYLIC ACID) [Suspect]
     Indication: CEREBROVASCULAR ACCIDENT PROPHYLAXIS
     Dosage: 100 MG (100 MG,1 IN 1 D) ORAL
     Route: 048
     Dates: start: 20070601, end: 20080716
  5. ENALAPRIL/HCT (TABLET) (HYDROCHLOROTHIAZIDE, ENALAPRIL MALEATE) [Suspect]
     Indication: CARDIAC FAILURE CHRONIC
     Dosage: 1 DOSAGE FORMS (1 DOSAGE FORMS, 1 IN 1 D) ORAL
     Route: 048
     Dates: start: 20070601, end: 20080716
  6. MICARDIS [Suspect]
     Indication: CORONARY ARTERY DISEASE
     Dosage: 40 MG (40 MG,1 IN 1 D) ORAL
     Route: 048
     Dates: start: 20070901, end: 20080716
  7. FUROSEMIDE (TABLET) (FUROSEMIDE) [Concomitant]
  8. MAGNETRANS FORTE (CAPSULE, HARD) (MAGNESIUM SODIUM) [Concomitant]
  9. RISPERDAL (FILM-COATED TABLET) (RISPERIDONE) [Concomitant]
  10. TIOTROPIUM (CAPSULE) (TIOTROPIUM) [Concomitant]

REACTIONS (1)
  - DIARRHOEA [None]
